FAERS Safety Report 19363228 (Version 2)
Quarter: 2021Q3

REPORT INFORMATION
  Report Type: Spontaneous
  Country: US (occurrence: US)
  Receive Date: 20210602
  Receipt Date: 20210701
  Transmission Date: 20211014
  Serious: Yes (Other)
  Sender: FDA-Public Use
  Company Number: US-PFIZER INC-2021494769

PATIENT
  Age: 43 Year
  Sex: Male

DRUGS (3)
  1. XELJANZ [Suspect]
     Active Substance: TOFACITINIB CITRATE
     Dosage: 10 MG
     Dates: start: 20210423
  2. XELJANZ [Suspect]
     Active Substance: TOFACITINIB CITRATE
     Dosage: 10 MG
     Dates: start: 20210329
  3. XELJANZ [Suspect]
     Active Substance: TOFACITINIB CITRATE
     Dosage: 10 MG
     Dates: start: 20210402

REACTIONS (6)
  - Fatigue [Unknown]
  - Nausea [Unknown]
  - Stress [Unknown]
  - Colitis ulcerative [Unknown]
  - Sinus disorder [Unknown]
  - Acne [Unknown]

NARRATIVE: CASE EVENT DATE: 2021
